FAERS Safety Report 14136540 (Version 1)
Quarter: 2017Q4

REPORT INFORMATION
  Report Type: Spontaneous
  Country: JP (occurrence: JP)
  Receive Date: 20171027
  Receipt Date: 20171027
  Transmission Date: 20180321
  Serious: Yes (Death, Other)
  Sender: FDA-Public Use
  Company Number: JP-PFIZER INC-2017445321

PATIENT
  Age: 7 Decade
  Sex: Male

DRUGS (4)
  1. IRINOTECAN HCL [Suspect]
     Active Substance: IRINOTECAN HYDROCHLORIDE
     Indication: METASTASES TO LUNG
     Dosage: 150 MG/M2, CYCLIC (ON WEEKS 1, 3, AND 5)
  2. IRINOTECAN HCL [Suspect]
     Active Substance: IRINOTECAN HYDROCHLORIDE
     Indication: METASTASES TO LIVER
  3. CETUXIMAB. [Suspect]
     Active Substance: CETUXIMAB
     Indication: METASTASES TO LUNG
     Dosage: 400 MG/M2, WEEKLY
  4. CETUXIMAB. [Suspect]
     Active Substance: CETUXIMAB
     Indication: METASTASES TO LIVER
     Dosage: 250 MG/M2, WEEKLY(REDUCED)

REACTIONS (3)
  - Colon cancer [Unknown]
  - Angina pectoris [Unknown]
  - Interstitial lung disease [Fatal]
